FAERS Safety Report 22811846 (Version 3)
Quarter: 2023Q4

REPORT INFORMATION
  Report Type: Spontaneous
  Country: US (occurrence: None)
  Receive Date: 20230811
  Receipt Date: 20231109
  Transmission Date: 20240110
  Serious: No
  Sender: FDA-Public Use
  Company Number: 2023A182998

PATIENT
  Age: 21447 Day
  Sex: Female

DRUGS (2)
  1. BYDUREON BCISE [Suspect]
     Active Substance: EXENATIDE
     Route: 058
  2. BYDUREON [Suspect]
     Active Substance: EXENATIDE
     Route: 058

REACTIONS (4)
  - Injection site haemorrhage [Unknown]
  - Device delivery system issue [Unknown]
  - Drug dose omission by device [Unknown]
  - Wrong technique in device usage process [Unknown]

NARRATIVE: CASE EVENT DATE: 20230806
